FAERS Safety Report 15404936 (Version 1)
Quarter: 2018Q3

REPORT INFORMATION
  Report Type: Spontaneous
  Country: DE (occurrence: DE)
  Receive Date: 20180920
  Receipt Date: 20180920
  Transmission Date: 20181010
  Serious: Yes (Death, Hospitalization, Other)
  Sender: FDA-Public Use
  Company Number: DE-DRREDDYS-GER/GER/18/0104045

PATIENT
  Age: 65 Year
  Sex: Female
  Weight: 73 kg

DRUGS (13)
  1. PERJETA [Suspect]
     Active Substance: PERTUZUMAB
     Indication: HER-2 POSITIVE BREAST CANCER
     Dosage: MAINTENANCE DOSE
     Dates: start: 20130716, end: 20130829
  2. MCP [Concomitant]
     Active Substance: METOCLOPRAMIDE HYDROCHLORIDE
     Indication: VOMITING
     Route: 048
     Dates: start: 20130625
  3. DEXAMETHASONE. [Concomitant]
     Active Substance: DEXAMETHASONE
     Indication: VOMITING
     Route: 048
     Dates: start: 20130805, end: 20130807
  4. PERJETA [Suspect]
     Active Substance: PERTUZUMAB
     Dosage: LOADING DOSE
     Dates: start: 20130625, end: 20130625
  5. ONDANSETRON [Concomitant]
     Active Substance: ONDANSETRON
     Indication: NAUSEA
     Route: 048
     Dates: start: 20130807, end: 20130808
  6. DEXAMETHASONE. [Concomitant]
     Active Substance: DEXAMETHASONE
     Dosage: DAILY DOSE: 8 MG MILLGRAM(S) EVERY DAYS
     Route: 048
     Dates: start: 20130715, end: 20130717
  7. HERCEPTIN [Suspect]
     Active Substance: TRASTUZUMAB
     Indication: HER-2 POSITIVE BREAST CANCER
     Dosage: LOADING DOSE
     Route: 042
     Dates: start: 20130625, end: 20130625
  8. DOLORMIN [Concomitant]
     Active Substance: IBUPROFEN
     Indication: PAIN
     Route: 048
     Dates: start: 20100809
  9. ONDANSETRON [Concomitant]
     Active Substance: ONDANSETRON
     Indication: VOMITING
     Dosage: DAILY DOSE: 8 MG MILLGRAM(S) EVERY DAYS
     Dates: start: 20130626, end: 20130627
  10. DOCETAXEL. [Suspect]
     Active Substance: DOCETAXEL
     Indication: BREAST CANCER
     Dosage: DAILY DOSE: 50 MG MILLGRAM(S) EVERY 3 WEEKS
     Route: 042
     Dates: start: 20130625, end: 20130829
  11. HERCEPTIN [Suspect]
     Active Substance: TRASTUZUMAB
     Dosage: MAINTENANCE DOSE
     Route: 042
     Dates: start: 20130716, end: 20130829
  12. ONDANSETRON [Concomitant]
     Active Substance: ONDANSETRON
     Dosage: DAILY DOSE: 8 MG MILLGRAM(S) EVERY DAYS
     Route: 048
     Dates: start: 20130717, end: 20130718
  13. DEXAMETHASONE. [Concomitant]
     Active Substance: DEXAMETHASONE
     Indication: NAUSEA
     Dosage: DAILY DOSE: 8 MG MILLGRAM(S) EVERY DAYS
     Route: 048
     Dates: start: 20130625, end: 20130627

REACTIONS (5)
  - Nasopharyngitis [Recovered/Resolved]
  - Diarrhoea [Recovered/Resolved]
  - Febrile neutropenia [Recovered/Resolved]
  - Death [Fatal]
  - Lung infiltration [Recovered/Resolved]

NARRATIVE: CASE EVENT DATE: 20130702
